FAERS Safety Report 13192045 (Version 1)
Quarter: 2017Q1

REPORT INFORMATION
  Report Type: Spontaneous
  Country: US (occurrence: US)
  Receive Date: 20170207
  Receipt Date: 20170207
  Transmission Date: 20170428
  Serious: No
  Sender: FDA-Public Use
  Company Number: US-PFIZER INC-2017049979

PATIENT
  Age: 61 Year
  Sex: Female

DRUGS (1)
  1. XELJANZ XR [Suspect]
     Active Substance: TOFACITINIB CITRATE
     Dosage: 11 MG, UNK

REACTIONS (7)
  - Fatigue [Unknown]
  - Mouth ulceration [Unknown]
  - Asthenia [Unknown]
  - Proteinuria [Unknown]
  - Oral herpes [Unknown]
  - Culture urine positive [Unknown]
  - Glycosylated haemoglobin decreased [Unknown]
